FAERS Safety Report 14539180 (Version 3)
Quarter: 2018Q2

REPORT INFORMATION
  Report Type: Spontaneous
  Country: US (occurrence: US)
  Receive Date: 20180216
  Receipt Date: 20180517
  Transmission Date: 20180711
  Serious: Yes (Death, Hospitalization, Other)
  Sender: FDA-Public Use
  Company Number: US-BRISTOL-MYERS SQUIBB COMPANY-BMS-2018-015177

PATIENT
  Sex: Male
  Weight: 74.4 kg

DRUGS (10)
  1. VALACYCLOVIR                       /01269701/ [Concomitant]
     Active Substance: VALACYCLOVIR HYDROCHLORIDE
     Indication: HERPES ZOSTER
     Dosage: 0.5 G, QD
     Route: 048
  2. METOPROLOL. [Concomitant]
     Active Substance: METOPROLOL
     Indication: HYPERTENSION
     Dosage: 50 MG, QD
     Route: 048
  3. VENLAFAXINE [Concomitant]
     Active Substance: VENLAFAXINE HYDROCHLORIDE
     Indication: ANTIDEPRESSANT THERAPY
     Dosage: 37.5 MG, QD
     Route: 048
  4. LEVOTHYROXIN [Concomitant]
     Active Substance: LEVOTHYROXINE
     Indication: HYPOTHYROIDISM
     Dosage: 50 ?G, QD
     Route: 048
  5. OMEPRAZOLE. [Concomitant]
     Active Substance: OMEPRAZOLE
     Indication: GASTROOESOPHAGEAL REFLUX DISEASE
     Dosage: 20 MG, QD
     Route: 048
  6. VITAMIN C [Concomitant]
     Active Substance: ASCORBIC ACID
     Indication: ADVERSE EVENT
     Dosage: 500 MG, QD
     Route: 048
  7. ZOFRAN [Concomitant]
     Active Substance: ONDANSETRON HYDROCHLORIDE
     Indication: NAUSEA
     Dosage: 8 MG, PRN
     Route: 048
  8. MAGNESIUM [Concomitant]
     Active Substance: MAGNESIUM
     Indication: ADVERSE EVENT
     Dosage: 400 MG, BID
     Route: 048
  9. OPDIVO [Suspect]
     Active Substance: NIVOLUMAB
     Indication: PENILE CANCER
     Dosage: 240 MG, Q2WK
     Route: 042
     Dates: start: 20170330, end: 20170918
  10. POTASSIUM [Concomitant]
     Active Substance: POTASSIUM
     Indication: ADVERSE EVENT
     Dosage: 20 MEQ, QD
     Route: 048

REACTIONS (4)
  - Death [Fatal]
  - Postoperative wound infection [Unknown]
  - Lymphadenopathy [Unknown]
  - Product use in unapproved indication [Unknown]
